FAERS Safety Report 5174329-6 (Version None)
Quarter: 2006Q4

REPORT INFORMATION
  Report Type: 
  Country: None (occurrence: None)
  Receive Date: 20061214
  Receipt Date: 20060824
  Transmission Date: 20070319
  Serious: Yes (Hospitalization)
  Sender: FDA-Public Use
  Company Number: US-ELI_LILLY_AND_COMPANY-US200609000254

PATIENT
  Sex: Male
  Weight: 176.42 kg

DRUGS (3)
  1. RISPERIDONE [Concomitant]
     Dates: start: 20020101
  2. ZIPRASIDONE HCL [Concomitant]
     Dates: start: 20020101
  3. ZYPREXA [Suspect]
     Indication: BIPOLAR DISORDER
     Dates: start: 20020101

REACTIONS (2)
  - DIABETES MELLITUS [None]
  - THROMBOSIS [None]
